FAERS Safety Report 12955174 (Version 1)
Quarter: 2016Q4

REPORT INFORMATION
  Report Type: Spontaneous
  Country: US (occurrence: US)
  Receive Date: 20161118
  Receipt Date: 20161118
  Transmission Date: 20170207
  Serious: No
  Sender: FDA-Public Use
  Company Number: US-PERRIGO-15US013038

PATIENT
  Sex: Male
  Weight: 86.17 kg

DRUGS (6)
  1. POLYETHYLENE GLYCOL 3350. [Suspect]
     Active Substance: POLYETHYLENE GLYCOL 3350
     Indication: CONSTIPATION
     Dosage: 17 G, QD
     Route: 048
  2. LACTAID [Concomitant]
     Active Substance: LACTASE
     Indication: PROPHYLAXIS
     Dosage: UNK
     Route: 065
  3. KLONOPIN [Concomitant]
     Active Substance: CLONAZEPAM
     Indication: IRRITABLE BOWEL SYNDROME
     Dosage: UNK
     Route: 065
     Dates: start: 1987
  4. POLYETHYLENE GLYCOL 3350. [Suspect]
     Active Substance: POLYETHYLENE GLYCOL 3350
     Dosage: 17 G, QD
     Route: 048
     Dates: start: 201512, end: 20151210
  5. LINZESS [Concomitant]
     Active Substance: LINACLOTIDE
     Indication: IRRITABLE BOWEL SYNDROME
     Dosage: UNK
     Route: 065
     Dates: start: 2014
  6. EFFEXOR [Concomitant]
     Active Substance: VENLAFAXINE HYDROCHLORIDE
     Indication: IRRITABLE BOWEL SYNDROME
     Dosage: UNK
     Route: 065
     Dates: start: 1987

REACTIONS (2)
  - Incorrect drug administration duration [Recovered/Resolved]
  - Drug ineffective [Unknown]
